APPROVED DRUG PRODUCT: HEPARIN SODIUM
Active Ingredient: HEPARIN SODIUM
Strength: 1,000 UNITS/ML
Dosage Form/Route: INJECTABLE;INJECTION
Application: N000552 | Product #008
Applicant: ASPEN GLOBAL INC
Approved: Approved Prior to Jan 1, 1982 | RLD: No | RS: No | Type: DISCN